FAERS Safety Report 21622457 (Version 1)
Quarter: 2022Q4

REPORT INFORMATION
  Report Type: Spontaneous
  Country: US (occurrence: US)
  Receive Date: 20221121
  Receipt Date: 20221121
  Transmission Date: 20230113
  Serious: Yes (Other)
  Sender: FDA-Public Use
  Company Number: US-SA-SAC20221116000359

PATIENT
  Sex: Male

DRUGS (1)
  1. EFLORNITHINE HYDROCHLORIDE [Suspect]
     Active Substance: EFLORNITHINE HYDROCHLORIDE
     Indication: Neuroblastoma
     Dosage: UNK

REACTIONS (1)
  - Deafness bilateral [Unknown]
